FAERS Safety Report 25725840 (Version 1)
Quarter: 2025Q3

REPORT INFORMATION
  Report Type: Spontaneous
  Country: EU (occurrence: EU)
  Receive Date: 20250826
  Receipt Date: 20250826
  Transmission Date: 20251020
  Serious: Yes (Hospitalization, Other)
  Sender: AUROBINDO
  Company Number: EU-EMA-DD-20250812-7483181-052742

PATIENT
  Age: 56 Year
  Sex: Male

DRUGS (6)
  1. MYCOPHENOLATE MOFETIL [Suspect]
     Active Substance: MYCOPHENOLATE MOFETIL
     Indication: Immunosuppressant drug therapy
     Route: 065
  2. MYCOPHENOLATE MOFETIL [Suspect]
     Active Substance: MYCOPHENOLATE MOFETIL
     Indication: Renal transplant
  3. TACROLIMUS [Suspect]
     Active Substance: TACROLIMUS
     Indication: Immunosuppressant drug therapy
     Route: 065
  4. TACROLIMUS [Suspect]
     Active Substance: TACROLIMUS
     Indication: Renal transplant
  5. LINEZOLID [Concomitant]
     Active Substance: LINEZOLID
     Indication: Product used for unknown indication
     Route: 042
  6. VALGANCICLOVIR [Concomitant]
     Active Substance: VALGANCICLOVIR
     Indication: Antiviral prophylaxis
     Route: 042

REACTIONS (13)
  - Klebsiella infection [Unknown]
  - Hydronephrosis [Unknown]
  - General physical health deterioration [Unknown]
  - Altered state of consciousness [Unknown]
  - Dysuria [Unknown]
  - Amylase increased [Unknown]
  - Urine output decreased [Unknown]
  - Abdominal pain [Unknown]
  - Transplant dysfunction [Unknown]
  - Urinary tract infection [Unknown]
  - Escherichia infection [Unknown]
  - Enterococcal infection [Unknown]
  - Immunosuppressant drug level increased [Unknown]
